FAERS Safety Report 15171557 (Version 2)
Quarter: 2018Q3

REPORT INFORMATION
  Report Type: Other
  Country: NL (occurrence: NL)
  Receive Date: 20180720
  Receipt Date: 20180808
  Transmission Date: 20181010
  Serious: Yes (Other)
  Sender: FDA-Public Use
  Company Number: NL-CELLTRION INC.-2018NL021349

PATIENT

DRUGS (9)
  1. LERCANIDIPINE [Concomitant]
     Active Substance: LERCANIDIPINE
  2. INFLIXIMAB (UNKNOWN) [Suspect]
     Active Substance: INFLIXIMAB
     Indication: CROHN^S DISEASE
     Dosage: 5.5 TABLET(S) 1 X A MONTH, EXTRA INFO: START?UP AT 2 WKS, 4 WKS, 8 WKS INFUSION 5 MG/KG
     Route: 042
     Dates: start: 20160615, end: 20160615
  3. INFLIXIMAB (UNKNOWN) [Suspect]
     Active Substance: INFLIXIMAB
     Dosage: 5.5 TABLET(S) 1 X A MONTH, EXTRA INFO: START?UP AT 2 WKS, 4 WKS, 8 WKS INFUSION 5 MG/KG
     Route: 065
     Dates: start: 201611, end: 201611
  4. AZAFALK [Suspect]
     Active Substance: AZATHIOPRINE
     Indication: CROHN^S DISEASE
     Dosage: 300 MG 1 DAY (3 TABLET(S) 1 X A DAY )
     Route: 065
     Dates: start: 20160901, end: 201611
  5. LOSARTAN. [Concomitant]
     Active Substance: LOSARTAN
  6. EZETROL [Concomitant]
     Active Substance: EZETIMIBE
  7. ASASANTIN [Concomitant]
     Active Substance: ASPIRIN\DIPYRIDAMOLE
  8. HYDROCHLOROTHIAZIDE. [Concomitant]
     Active Substance: HYDROCHLOROTHIAZIDE
  9. LISINOPRIL. [Concomitant]
     Active Substance: LISINOPRIL

REACTIONS (4)
  - Inappropriate schedule of drug administration [Unknown]
  - Off label use [Unknown]
  - Malignant neoplasm progression [Unknown]
  - Malignant neoplasm progression [Not Recovered/Not Resolved]

NARRATIVE: CASE EVENT DATE: 20160615
